FAERS Safety Report 18096985 (Version 1)
Quarter: 2020Q3

REPORT INFORMATION
  Report Type: Spontaneous
  Country: US (occurrence: US)
  Receive Date: 20200730
  Receipt Date: 20200730
  Transmission Date: 20201103
  Serious: No
  Sender: FDA-Public Use
  Company Number: US-009507513-2007USA011040

PATIENT
  Age: 6 Month
  Sex: Female

DRUGS (7)
  1. CETIRIZINE HYDROCHLORIDE. [Concomitant]
     Active Substance: CETIRIZINE HYDROCHLORIDE
     Indication: SYSTEMIC MASTOCYTOSIS
  2. SINGULAIR [Suspect]
     Active Substance: MONTELUKAST SODIUM
     Indication: SYSTEMIC MASTOCYTOSIS
     Route: 048
  3. DIPHENHYDRAMINE. [Concomitant]
     Active Substance: DIPHENHYDRAMINE
     Indication: SYSTEMIC MASTOCYTOSIS
  4. CROMOLYN [Concomitant]
     Active Substance: CROMOLYN
     Indication: SYSTEMIC MASTOCYTOSIS
  5. RANITIDINE. [Concomitant]
     Active Substance: RANITIDINE
     Indication: SYSTEMIC MASTOCYTOSIS
  6. PREDNISOLONE. [Concomitant]
     Active Substance: PREDNISOLONE
     Indication: SYSTEMIC MASTOCYTOSIS
  7. HYDROXYZINE [Concomitant]
     Active Substance: HYDROXYZINE HYDROCHLORIDE
     Indication: SYSTEMIC MASTOCYTOSIS

REACTIONS (1)
  - Product use in unapproved indication [Unknown]
